FAERS Safety Report 24571969 (Version 1)
Quarter: 2024Q4

REPORT INFORMATION
  Report Type: Spontaneous
  Country: US (occurrence: None)
  Receive Date: 20241031
  Receipt Date: 20241031
  Transmission Date: 20250115
  Serious: Yes (unspecified)
  Sender: Public
  Company Number: None

PATIENT
  Age: 62 Year
  Sex: Female

DRUGS (1)
  1. HEPARIN [Suspect]
     Active Substance: HEPARIN SODIUM

REACTIONS (5)
  - Activated partial thromboplastin time prolonged [None]
  - Drug monitoring procedure not performed [None]
  - Incorrect drug administration rate [None]
  - Therapy interrupted [None]
  - Epistaxis [None]

NARRATIVE: CASE EVENT DATE: 20240804
